FAERS Safety Report 12367258 (Version 2)
Quarter: 2016Q2

REPORT INFORMATION
  Report Type: Spontaneous
  Country: ES (occurrence: ES)
  Receive Date: 20160513
  Receipt Date: 20160604
  Transmission Date: 20160815
  Serious: Yes (Hospitalization, Other)
  Sender: FDA-Public Use
  Company Number: ES-CELGENEUS-ESP-2016048210

PATIENT

DRUGS (2)
  1. ABRAXANE [Suspect]
     Active Substance: PACLITAXEL
     Indication: OFF LABEL USE
  2. ABRAXANE [Suspect]
     Active Substance: PACLITAXEL
     Indication: NEOPLASM MALIGNANT
     Route: 041

REACTIONS (25)
  - Neutropenia [Unknown]
  - Onycholysis [Unknown]
  - Dysgeusia [Unknown]
  - Alopecia [Unknown]
  - Skin disorder [Unknown]
  - Diarrhoea [Unknown]
  - Arthralgia [Unknown]
  - Disease progression [Unknown]
  - Hypersensitivity [Unknown]
  - Epistaxis [Unknown]
  - Neuropathy peripheral [Unknown]
  - Febrile neutropenia [Unknown]
  - Oedema [Unknown]
  - Fatigue [Unknown]
  - Nausea [Unknown]
  - Transaminases increased [Unknown]
  - Pyrexia [Unknown]
  - Anaemia [Unknown]
  - Vomiting [Unknown]
  - Thrombocytopenia [Unknown]
  - Acute kidney injury [Unknown]
  - Blood phosphorus increased [Unknown]
  - Mucosal inflammation [Unknown]
  - Gastrointestinal toxicity [Unknown]
  - Myalgia [Unknown]
